FAERS Safety Report 5380041-0 (Version None)
Quarter: 2007Q3

REPORT INFORMATION
  Report Type: 
  Country: None (occurrence: None)
  Receive Date: 20070706
  Receipt Date: 20070404
  Transmission Date: 20080115
  Serious: No
  Sender: FDA-Public Use
  Company Number: A0645967A

PATIENT
  Age: 40 Year
  Sex: Female

DRUGS (9)
  1. TYKERB [Suspect]
     Dosage: 1250MG PER DAY
     Route: 048
     Dates: start: 20070331
  2. NEXIUM [Concomitant]
  3. Q-10 ENZYME VITAMINS [Concomitant]
  4. GABAPENTIN [Concomitant]
  5. BIAXIN [Concomitant]
  6. DOXYCILLIN [Concomitant]
  7. CELEXA [Concomitant]
  8. MELATONIN [Concomitant]
  9. PREDNISONE TAB [Concomitant]

REACTIONS (3)
  - DIARRHOEA [None]
  - NAUSEA [None]
  - VOMITING [None]
